FAERS Safety Report 8285725 (Version 3)
Quarter: 2012Q4

REPORT INFORMATION
  Report Type: 
  Country: DE (occurrence: DE)
  Receive Date: 20111213
  Receipt Date: 20121008
  Transmission Date: 20130627
  Serious: Yes (Death, Other)
  Sender: FDA-Public Use
  Company Number: DE-ASTELLAS-2011US008292

PATIENT
  Age: 66 Year
  Sex: Female

DRUGS (3)
  1. TARCEVA [Suspect]
     Indication: NON-SMALL CELL LUNG CANCER
     Dosage: 150 mg, UID/QD
     Route: 048
     Dates: start: 200902
  2. TARCEVA [Suspect]
     Dosage: 25 mg, UID/QD
     Route: 048
     Dates: end: 201003
  3. TARCEVA [Suspect]
     Dosage: 150 mg, UID/QD
     Route: 048
     Dates: end: 20100726

REACTIONS (6)
  - Paraneoplastic neurological syndrome [Fatal]
  - Drug resistance [Unknown]
  - Malignant neoplasm progression [Fatal]
  - Muscular weakness [Unknown]
  - Decreased appetite [Unknown]
  - Paronychia [Unknown]
